FAERS Safety Report 6209475-9 (Version None)
Quarter: 2009Q2

REPORT INFORMATION
  Report Type: 
  Country: None (occurrence: None)
  Receive Date: 20090601
  Receipt Date: 20081027
  Transmission Date: 20091009
  Serious: No
  Sender: FDA-Public Use
  Company Number: A0753886A

PATIENT
  Age: 37 Year
  Sex: Female

DRUGS (2)
  1. AUGMENTIN '125' [Suspect]
     Indication: EAR INFECTION
     Dosage: 2TAB TWICE PER DAY
     Route: 048
     Dates: start: 20081025, end: 20081027
  2. PROBIOTIC [Concomitant]

REACTIONS (6)
  - ABDOMINAL DISCOMFORT [None]
  - ABDOMINAL PAIN UPPER [None]
  - DIARRHOEA [None]
  - DIZZINESS [None]
  - FEELING ABNORMAL [None]
  - NAUSEA [None]
